FAERS Safety Report 10635031 (Version 3)
Quarter: 2014Q4

REPORT INFORMATION
  Report Type: Report from Study
  Country: KR (occurrence: KR)
  Receive Date: 20141205
  Receipt Date: 20141226
  Transmission Date: 20150529
  Serious: Yes (Hospitalization)
  Sender: FDA-Public Use
  Company Number: KR-BAYER-2013-120718

PATIENT
  Age: 56 Year
  Sex: Female
  Weight: 54.3 kg

DRUGS (8)
  1. REGORAFENIB [Suspect]
     Active Substance: REGORAFENIB
     Indication: GASTROINTESTINAL STROMAL TUMOUR
     Dosage: TOTAL DAILY DOSE 120MG
     Route: 048
     Dates: start: 20141021, end: 20141031
  2. REGORAFENIB [Suspect]
     Active Substance: REGORAFENIB
     Indication: GASTROINTESTINAL STROMAL TUMOUR
     Dosage: 80MG/DAY
     Route: 048
     Dates: start: 20141215
  3. NORVASC [Concomitant]
     Active Substance: AMLODIPINE BESYLATE
     Indication: HYPERTENSION
     Dosage: TOTAL DAILY DOSE 5MG
     Route: 048
     Dates: start: 20131119
  4. REGORAFENIB [Suspect]
     Active Substance: REGORAFENIB
     Indication: GASTROINTESTINAL STROMAL TUMOUR
     Dosage: 120 MG/DAY
     Route: 048
     Dates: start: 20131001, end: 20131005
  5. REGORAFENIB [Suspect]
     Active Substance: REGORAFENIB
     Indication: GASTROINTESTINAL STROMAL TUMOUR
     Dosage: TOTAL DAILY DOSE 80MG
     Route: 048
     Dates: start: 20141101, end: 20141117
  6. REGORAFENIB [Suspect]
     Active Substance: REGORAFENIB
     Indication: GASTROINTESTINAL STROMAL TUMOUR
     Dosage: TOTAL DAILY DOSE 80MG
     Route: 048
     Dates: start: 20141118, end: 20141124
  7. REGORAFENIB [Suspect]
     Active Substance: REGORAFENIB
     Indication: GASTROINTESTINAL STROMAL TUMOUR
     Dosage: 160 MG/DAY
     Route: 048
     Dates: start: 20130924, end: 20130930
  8. REGORAFENIB [Suspect]
     Active Substance: REGORAFENIB
     Indication: GASTROINTESTINAL STROMAL TUMOUR
     Dosage: 80 MG
     Route: 048
     Dates: start: 20131011

REACTIONS (2)
  - Hepatitis toxic [Recovered/Resolved]
  - Rash [Recovered/Resolved]

NARRATIVE: CASE EVENT DATE: 20131003
